FAERS Safety Report 7292996-8 (Version None)
Quarter: 2011Q1

REPORT INFORMATION
  Report Type: 
  Country: None (occurrence: None)
  Receive Date: 20110215
  Receipt Date: 20110207
  Transmission Date: 20110831
  Serious: Yes (Hospitalization)
  Sender: FDA-Public Use
  Company Number: US-JNJFOC-20110203393

PATIENT
  Sex: Female
  Weight: 36 kg

DRUGS (8)
  1. MESALAMINE [Concomitant]
     Route: 048
  2. REMICADE [Suspect]
     Route: 042
  3. PREVACID [Concomitant]
  4. REMICADE [Suspect]
     Indication: INFLAMMATORY BOWEL DISEASE
     Route: 042
  5. PREDNISONE [Concomitant]
  6. FERROUS SULFATE TAB [Concomitant]
  7. MESALAMINE [Concomitant]
     Route: 054
  8. MULTIPLE VITAMINS [Concomitant]

REACTIONS (1)
  - COLITIS [None]
